FAERS Safety Report 15015284 (Version 2)
Quarter: 2018Q3

REPORT INFORMATION
  Report Type: Spontaneous
  Country: US (occurrence: US)
  Receive Date: 20180615
  Receipt Date: 20180823
  Transmission Date: 20181010
  Serious: Yes (Other)
  Sender: FDA-Public Use
  Company Number: US-BAYER-2018-109678

PATIENT
  Age: 29 Year
  Sex: Female
  Weight: 84.27 kg

DRUGS (1)
  1. KYLEENA [Suspect]
     Active Substance: LEVONORGESTREL
     Indication: CONTRACEPTION
     Dosage: UNK
     Route: 015
     Dates: start: 20170506

REACTIONS (14)
  - Breast cyst [Not Recovered/Not Resolved]
  - Breast mass [None]
  - Breast pain [None]
  - Skin disorder [None]
  - Breast tenderness [None]
  - Breast haematoma [Not Recovered/Not Resolved]
  - Mastitis [None]
  - Erythema [None]
  - Breast discomfort [None]
  - Breast disorder [None]
  - Breast swelling [None]
  - Retracted nipple [None]
  - Breast abscess [Not Recovered/Not Resolved]
  - Mammary duct ectasia [None]

NARRATIVE: CASE EVENT DATE: 201705
